FAERS Safety Report 17284225 (Version 4)
Quarter: 2020Q2

REPORT INFORMATION
  Report Type: Report from Study
  Country: CA (occurrence: CA)
  Receive Date: 20200117
  Receipt Date: 20200421
  Transmission Date: 20200713
  Serious: Yes (Other)
  Sender: FDA-Public Use
  Company Number: CA-BAUSCH-BL-2020-000716

PATIENT
  Age: 70 Year
  Sex: Female
  Weight: 86.26 kg

DRUGS (9)
  1. CONTRAVE [Suspect]
     Active Substance: BUPROPION HYDROCHLORIDE\NALTREXONE HYDROCHLORIDE
     Indication: WEIGHT CONTROL
     Dosage: STRENGTH: 90/8 MG, 1 TABLET IN MORNING, START DATE: APPROX. 20/NOV/2019, END: APPROX. 26/NOV/2019
     Route: 048
     Dates: start: 201911, end: 201911
  2. CONTRAVE [Suspect]
     Active Substance: BUPROPION HYDROCHLORIDE\NALTREXONE HYDROCHLORIDE
     Dosage: 90/8 MG, 1 TABLET MORNING AND 1 TABLET IN EVENING
     Route: 048
     Dates: start: 20200123, end: 20200204
  3. CONTRAVE [Suspect]
     Active Substance: BUPROPION HYDROCHLORIDE\NALTREXONE HYDROCHLORIDE
     Dosage: 90/8 MG, 2 TABLETS IN MORNING AND 1 TABLET IN EVENING
     Route: 048
     Dates: start: 20200205, end: 20200218
  4. BUPROPION. [Suspect]
     Active Substance: BUPROPION
     Indication: DEPRESSION
     Route: 048
  5. CONTRAVE [Suspect]
     Active Substance: BUPROPION HYDROCHLORIDE\NALTREXONE HYDROCHLORIDE
     Dosage: 90/8 MG, 2 TABLETS IN MORNING AND 2 TABLETS IN EVENING, YESTERDAY (FROM THE DATE OF FOLLOW UP THREE)
     Route: 048
     Dates: start: 20200219, end: 20200408
  6. OLMESARTAN [Concomitant]
     Active Substance: OLMESARTAN
     Indication: HYPERTENSION
     Route: 048
  7. DULOXETINE. [Concomitant]
     Active Substance: DULOXETINE
     Indication: DEPRESSION
     Route: 048
  8. CONTRAVE [Suspect]
     Active Substance: BUPROPION HYDROCHLORIDE\NALTREXONE HYDROCHLORIDE
     Dosage: 90/8 MG, 1 TABLET MORNING, 1 TABLET EVENING, START: APPROX. 27/NOV/2019, END: APPROX. 02/DEC/2019
     Route: 048
     Dates: start: 201911, end: 201912
  9. CONTRAVE [Suspect]
     Active Substance: BUPROPION HYDROCHLORIDE\NALTREXONE HYDROCHLORIDE
     Dosage: 90/8 MG, 1 TABLET MORNING SECOND ATTEMPT
     Route: 048
     Dates: start: 20200109, end: 20200122

REACTIONS (14)
  - Diarrhoea [Unknown]
  - Tremor [Recovering/Resolving]
  - Drug titration error [Unknown]
  - Memory impairment [Unknown]
  - Loss of dreaming [Unknown]
  - Sleep disorder [Unknown]
  - Constipation [Unknown]
  - Abdominal pain lower [Unknown]
  - Abdominal pain upper [Recovered/Resolved]
  - Malaise [Unknown]
  - Headache [Unknown]
  - Knee arthroplasty [Unknown]
  - Pain [Unknown]
  - Patient dissatisfaction with treatment [Unknown]

NARRATIVE: CASE EVENT DATE: 2019
